FAERS Safety Report 23409097 (Version 1)
Quarter: 2024Q1

REPORT INFORMATION
  Report Type: Spontaneous
  Country: US (occurrence: None)
  Receive Date: 20240115
  Receipt Date: 20240115
  Transmission Date: 20240410
  Serious: Yes (Other)
  Sender: FDA-Public Use
  Company Number: None

PATIENT
  Age: 5 Year
  Sex: Male
  Weight: 20.43 kg

DRUGS (3)
  1. UP AND UP POWDERLAX [Suspect]
     Active Substance: POLYETHYLENE GLYCOL 3350
     Indication: Constipation
     Dosage: OTHER QUANTITY : 1 CAP FULL;?OTHER FREQUENCY : PER DOCTORS REC;?
     Route: 048
     Dates: start: 20231231, end: 20240110
  2. Montekukast Chew tabs [Concomitant]
  3. Olly Kids Multivitamin gummy + Probiotics [Concomitant]

REACTIONS (2)
  - Anger [None]
  - Therapy interrupted [None]

NARRATIVE: CASE EVENT DATE: 20240107
